FAERS Safety Report 7683874-0 (Version None)
Quarter: 2011Q3

REPORT INFORMATION
  Report Type: 
  Country: None (occurrence: None)
  Receive Date: 20110815
  Receipt Date: 20110804
  Transmission Date: 20111222
  Serious: Yes (Hospitalization, Other)
  Sender: FDA-Public Use
  Company Number: US-BAYER-2010-001991

PATIENT
  Age: 27 Year
  Sex: Female
  Weight: 90.703 kg

DRUGS (3)
  1. YASMIN [Suspect]
     Indication: CONTRACEPTION
     Dosage: UNK UNK, QD
     Route: 048
     Dates: start: 20020101, end: 20020701
  2. DEPO-PROVERA [Concomitant]
     Dosage: 150 MG, UNK
     Route: 030
     Dates: start: 20020614
  3. PROTON PUMP INHIBITORS [Concomitant]

REACTIONS (5)
  - OEDEMA PERIPHERAL [None]
  - DEEP VEIN THROMBOSIS [None]
  - VARICOSE VEIN [None]
  - PAIN IN EXTREMITY [None]
  - FEAR OF DISEASE [None]
